FAERS Safety Report 4840360-0 (Version None)
Quarter: 2005Q4

REPORT INFORMATION
  Report Type: 
  Country: None (occurrence: None)
  Receive Date: 20051025
  Receipt Date: 20050627
  Transmission Date: 20060501
  Serious: Yes (Other)
  Sender: FDA-Public Use
  Company Number: US-JNJFOC-20050303624

PATIENT
  Age: 81 Year
  Sex: Male
  Weight: 70.3075 kg

DRUGS (2)
  1. FLEXERIL [Suspect]
     Indication: MUSCLE SPASMS
     Dosage: 5 MG, 2 IN 1 DAY
     Dates: start: 20050214
  2. CORTISONE (CORTISONE) INJECTION [Concomitant]

REACTIONS (1)
  - URINARY RETENTION [None]
